FAERS Safety Report 5055802-8 (Version None)
Quarter: 2006Q3

REPORT INFORMATION
  Report Type: 
  Country: None (occurrence: None)
  Receive Date: 20060718
  Receipt Date: 20060718
  Transmission Date: 20061208
  Serious: Yes (Disabling)
  Sender: FDA-Public Use
  Company Number: None

PATIENT
  Age: 3 Day
  Sex: Male
  Weight: 3.1752 kg

DRUGS (1)
  1. CREAMY PETROLEUM JELLY SAV-ON OSCO BY ALBERTSONS [Suspect]
     Indication: CIRCUMCISION
     Dosage: 1/2 TEASPOON ON (SEE IMAGE) WITH DIAPER CHANGE TOP
     Route: 061
     Dates: start: 20060627, end: 20060710

REACTIONS (6)
  - ADHESION [None]
  - ERYTHEMA [None]
  - PENIS DISORDER [None]
  - POSTOPERATIVE WOUND INFECTION [None]
  - SKIN IRRITATION [None]
  - SKIN SWELLING [None]
